FAERS Safety Report 7364485-3 (Version None)
Quarter: 2011Q1

REPORT INFORMATION
  Report Type: 
  Country: None (occurrence: None)
  Receive Date: 20110321
  Receipt Date: 20110308
  Transmission Date: 20110831
  Serious: Yes (Death)
  Sender: FDA-Public Use
  Company Number: GB-CELGENEUS-167-21880-11021335

PATIENT
  Sex: Male

DRUGS (10)
  1. FINASTERIDE [Concomitant]
     Dosage: 5 MILLIGRAM
     Route: 048
     Dates: start: 20110214, end: 20110220
  2. REVLIMID [Suspect]
     Indication: MULTIPLE MYELOMA
     Route: 048
     Dates: start: 20090722, end: 20100101
  3. LANSOPRAZOLE [Concomitant]
     Dosage: 30 MILLIGRAM
     Route: 048
     Dates: start: 20110201, end: 20110225
  4. COTRIM [Concomitant]
     Indication: PROPHYLAXIS
     Route: 048
     Dates: end: 20110225
  5. DEXAMETHASONE [Concomitant]
     Indication: MULTIPLE MYELOMA
     Route: 065
     Dates: start: 20090722, end: 20100101
  6. ACYCLOVIR [Concomitant]
     Indication: PROPHYLAXIS
     Route: 048
     Dates: end: 20110225
  7. DOCUSATE SODIUM [Concomitant]
     Route: 065
     Dates: end: 20110211
  8. OXYCODONE [Concomitant]
     Indication: PAIN
     Route: 065
     Dates: start: 20110201, end: 20110217
  9. ALLOPURINOL [Concomitant]
     Dosage: 300 MILLIGRAM
     Route: 048
     Dates: start: 20110201, end: 20110225
  10. CYCLOPHOSPHAMIDE [Concomitant]
     Indication: MULTIPLE MYELOMA
     Route: 065
     Dates: start: 20100510

REACTIONS (2)
  - MULTIPLE MYELOMA [None]
  - BRONCHOPNEUMONIA [None]
